FAERS Safety Report 7375602-3 (Version None)
Quarter: 2011Q1

REPORT INFORMATION
  Report Type: 
  Country: None (occurrence: None)
  Receive Date: 20110315
  Receipt Date: 20110228
  Transmission Date: 20110831
  Serious: Yes (Death)
  Sender: FDA-Public Use
  Company Number: 201110225

PATIENT

DRUGS (1)
  1. LIORESAL [Suspect]
     Indication: MUSCLE SPASTICITY
     Dosage: DAILY, INTRATHECAL
     Route: 037

REACTIONS (9)
  - DRUG WITHDRAWAL SYNDROME [None]
  - CSF TEST ABNORMAL [None]
  - DEVICE MALFUNCTION [None]
  - DEVICE BREAKAGE [None]
  - INFECTION [None]
  - WOUND [None]
  - DEVICE DISLOCATION [None]
  - IMPLANT SITE EFFUSION [None]
  - MEDICAL DEVICE COMPLICATION [None]
